FAERS Safety Report 12789761 (Version 1)
Quarter: 2016Q3

REPORT INFORMATION
  Report Type: Other
  Country: US (occurrence: US)
  Receive Date: 20160928
  Receipt Date: 20160928
  Transmission Date: 20161109
  Serious: Yes (Disabling)
  Sender: FDA-Public Use
  Company Number: US-ACORDA-ACO_128543_2016

PATIENT
  Sex: Male

DRUGS (1)
  1. AMPYRA [Suspect]
     Active Substance: DALFAMPRIDINE
     Indication: PRODUCT USED FOR UNKNOWN INDICATION
     Dosage: 10 MG, Q 12 HRS
     Route: 048
     Dates: start: 20151110

REACTIONS (5)
  - Insomnia [Not Recovered/Not Resolved]
  - Peroneal nerve palsy [Unknown]
  - Synovial cyst [Not Recovered/Not Resolved]
  - Anxiety [Unknown]
  - Musculoskeletal stiffness [Unknown]
